FAERS Safety Report 7958113-3 (Version None)
Quarter: 2011Q4

REPORT INFORMATION
  Report Type: 
  Country: None (occurrence: None)
  Receive Date: 20111130
  Receipt Date: 20111122
  Transmission Date: 20120403
  Serious: Yes (Death)
  Sender: FDA-Public Use
  Company Number: ADR-2011-11607

PATIENT
  Age: 48 Year
  Sex: Male

DRUGS (4)
  1. BACLOFEN [Suspect]
     Dosage: 164.86 MCG/DAY
  2. DILAUDID [Concomitant]
  3. CLONIDINE [Concomitant]
  4. BUPIVACAINE HCL [Concomitant]

REACTIONS (2)
  - SQUAMOUS CELL CARCINOMA [None]
  - CONDITION AGGRAVATED [None]
